FAERS Safety Report 7867933-5 (Version None)
Quarter: 2011Q4

REPORT INFORMATION
  Report Type: 
  Country: None (occurrence: None)
  Receive Date: 20111028
  Receipt Date: 20111013
  Transmission Date: 20120403
  Serious: Yes (Other)
  Sender: FDA-Public Use
  Company Number: PHHY2011FR91229

PATIENT
  Age: 60 Year
  Sex: Male

DRUGS (10)
  1. CEFPODOXIME PROXETIL [Concomitant]
     Indication: BRONCHITIS
  2. PREDNISONE [Suspect]
     Indication: PROPHYLAXIS AGAINST GRAFT VERSUS HOST DISEASE
     Dosage: UNK
     Dates: start: 20080407, end: 20090616
  3. VFEND [Suspect]
     Dosage: 200 MG, BID
     Dates: start: 20110205, end: 20110501
  4. OROCAL [Concomitant]
  5. GLEEVEC [Concomitant]
     Dosage: UNK
     Dates: start: 20110119
  6. VALACYCLOVIR HYDROCHLORIDE [Concomitant]
     Dosage: UNK
     Dates: start: 20110117
  7. VFEND [Suspect]
     Indication: BRONCHOPULMONARY ASPERGILLOSIS
     Dosage: 200 MG, BID
     Dates: start: 20090401, end: 20090701
  8. SPIRIVA [Concomitant]
     Dosage: UNK
     Dates: start: 20110119
  9. NEORAL [Suspect]
     Indication: PROPHYLAXIS AGAINST GRAFT VERSUS HOST DISEASE
     Dosage: UNK
     Dates: start: 20080407, end: 20081030
  10. VFEND [Suspect]
     Dosage: 200 MG, BID
     Dates: start: 20091118, end: 20091125

REACTIONS (7)
  - PHOTOSENSITIVITY REACTION [None]
  - ERYTHEMA [None]
  - HYPERKERATOSIS [None]
  - HYPERPLASIA [None]
  - DERMATITIS BULLOUS [None]
  - ACTINIC KERATOSIS [None]
  - STAPHYLOCOCCAL INFECTION [None]
